FAERS Safety Report 5019906-8 (Version None)
Quarter: 2006Q2

REPORT INFORMATION
  Report Type: 
  Country: None (occurrence: None)
  Receive Date: 20060605
  Receipt Date: 20060605
  Transmission Date: 20061013
  Serious: No
  Sender: FDA-Public Use
  Company Number: None

PATIENT
  Age: 63 Year
  Sex: Male
  Weight: 97.0698 kg

DRUGS (1)
  1. OXYCONTIN [Suspect]
     Dosage: 80 MG QID PO
     Route: 048
     Dates: start: 20050101

REACTIONS (3)
  - CHILLS [None]
  - INADEQUATE ANALGESIA [None]
  - NAUSEA [None]
